FAERS Safety Report 24747953 (Version 1)
Quarter: 2024Q4

REPORT INFORMATION
  Report Type: Spontaneous
  Country: US (occurrence: US)
  Receive Date: 20241218
  Receipt Date: 20241218
  Transmission Date: 20250114
  Serious: No
  Sender: PFIZER
  Company Number: US-PFIZER INC-202400289355

PATIENT
  Age: 94 Year
  Sex: Male

DRUGS (4)
  1. CIBINQO [Suspect]
     Active Substance: ABROCITINIB
     Dosage: 200MG, TAKE ONE-HALF TABLET ONCE TO TWICE DAILY
     Route: 048
  2. CIBINQO [Suspect]
     Active Substance: ABROCITINIB
     Dosage: 150 MG (ONE-HALF TABLET ONCE TO TWICE A DAY)
     Route: 048
  3. CIBINQO [Suspect]
     Active Substance: ABROCITINIB
     Dosage: 50 MG, 2X/DAY (CIBINQO 100MG; HALF TABLET, TWO TIMES DAILY)
  4. CIBINQO [Suspect]
     Active Substance: ABROCITINIB
     Dosage: 100 MG, DAILY (CIBINQO 100MG 1 TABLET DAILY)

REACTIONS (3)
  - Off label use [Unknown]
  - Wrong technique in product usage process [Unknown]
  - Nasopharyngitis [Unknown]
